FAERS Safety Report 7416892-8 (Version None)
Quarter: 2011Q2

REPORT INFORMATION
  Report Type: 
  Country: None (occurrence: None)
  Receive Date: 20110415
  Receipt Date: 20110404
  Transmission Date: 20111010
  Serious: Yes (Other)
  Sender: FDA-Public Use
  Company Number: US-JNJFOC-20110402549

PATIENT
  Sex: Female

DRUGS (8)
  1. DURAGESIC [Suspect]
     Indication: PAIN
     Route: 062
  2. DURAGESIC [Suspect]
     Route: 062
  3. DURAGESIC [Suspect]
     Route: 062
  4. DURAGESIC [Suspect]
     Dosage: 25 MCG+12MCG
     Route: 062
  5. DURAGESIC [Suspect]
     Route: 062
  6. DURAGESIC [Suspect]
     Route: 062
  7. FENTANYL-100 [Suspect]
     Indication: PAIN
     Route: 062
  8. PERCOCET [Concomitant]
     Indication: PAIN
     Dosage: 1 OR 2 TABS AS THE OCCASION ARISES
     Route: 065

REACTIONS (7)
  - FALL [None]
  - IMPAIRED DRIVING ABILITY [None]
  - DRUG INEFFECTIVE [None]
  - WRIST FRACTURE [None]
  - INAPPROPRIATE SCHEDULE OF DRUG ADMINISTRATION [None]
  - INCORRECT DOSE ADMINISTERED [None]
  - HYPERSOMNIA [None]
